FAERS Safety Report 8759967 (Version 2)
Quarter: 2012Q4

REPORT INFORMATION
  Report Type: 
  Country: DE (occurrence: DE)
  Receive Date: 20120829
  Receipt Date: 20121030
  Transmission Date: 20130627
  Serious: Yes (Hospitalization, Other)
  Sender: FDA-Public Use
  Company Number: DE-JNJFOC-20120813694

PATIENT
  Sex: Male
  Weight: 91 kg

DRUGS (3)
  1. XARELTO [Suspect]
     Indication: PRODUCT USED FOR UNKNOWN INDICATION
     Route: 048
  2. MIRTAZAPIN [Concomitant]
     Route: 065
  3. TREVILOR [Concomitant]
     Route: 065

REACTIONS (2)
  - Facial paresis [Recovering/Resolving]
  - Hypoaesthesia [Recovering/Resolving]
